FAERS Safety Report 21660433 (Version 1)
Quarter: 2022Q4

REPORT INFORMATION
  Report Type: Other
  Country: JP (occurrence: JP)
  Receive Date: 20221130
  Receipt Date: 20221130
  Transmission Date: 20230113
  Serious: Yes (Death, Other)
  Sender: FDA-Public Use
  Company Number: JP-CHUGAI-2022046920

PATIENT
  Age: 72 Year
  Sex: Female

DRUGS (5)
  1. CELLCEPT [Suspect]
     Active Substance: MYCOPHENOLATE MOFETIL
     Indication: Liver disorder
     Route: 048
     Dates: start: 2022, end: 2022
  2. URSODIOL [Concomitant]
     Active Substance: URSODIOL
     Indication: Liver disorder
     Dosage: UNK
     Route: 065
     Dates: start: 2022, end: 2022
  3. URSODIOL [Concomitant]
     Active Substance: URSODIOL
     Dosage: 600 MILLIGRAM, QD
     Route: 065
     Dates: start: 2022, end: 2022
  4. PREDNISOLONE [Concomitant]
     Active Substance: PREDNISOLONE
     Indication: Liver disorder
     Dosage: 50 MILLIGRAM, QD
     Route: 065
     Dates: start: 2022, end: 2022
  5. PREDNISOLONE [Concomitant]
     Active Substance: PREDNISOLONE
     Dosage: UNK UNK, QD
     Route: 065
     Dates: start: 2022, end: 2022

REACTIONS (5)
  - Cytomegalovirus enterocolitis [Fatal]
  - COVID-19 [Unknown]
  - Emphysematous cystitis [Unknown]
  - Pneumonia legionella [Unknown]
  - Product use in unapproved indication [Unknown]

NARRATIVE: CASE EVENT DATE: 20220101
